FAERS Safety Report 18135564 (Version 2)
Quarter: 2022Q4

REPORT INFORMATION
  Report Type: Spontaneous
  Country: DE (occurrence: DE)
  Receive Date: 20200811
  Receipt Date: 20221020
  Transmission Date: 20230113
  Serious: Yes (Hospitalization)
  Sender: FDA-Public Use
  Company Number: None

PATIENT
  Age: 61 Year
  Sex: Male

DRUGS (5)
  1. TAMSULOSIN [Suspect]
     Active Substance: TAMSULOSIN
     Indication: Product used for unknown indication
     Dosage: 0.4 MG, QD
     Route: 048
  2. HYDROCHLOROTHIAZIDE\RAMIPRIL [Suspect]
     Active Substance: HYDROCHLOROTHIAZIDE\RAMIPRIL
     Indication: Product used for unknown indication
     Dosage: 25|5 MG, QD
     Route: 048
  3. LERCANIDIPINE [Suspect]
     Active Substance: LERCANIDIPINE
     Indication: Product used for unknown indication
     Dosage: 10 MG, QD
     Route: 048
  4. LEVOTHYROXINENATRIUM TEVA [Concomitant]
     Indication: Product used for unknown indication
     Dosage: 75 UG, QD
     Route: 048
  5. PANTOPRAZOLE SODIUM [Concomitant]
     Active Substance: PANTOPRAZOLE SODIUM
     Indication: Product used for unknown indication
     Dosage: 40 MG, QD
     Route: 048

REACTIONS (10)
  - Dyspepsia [Unknown]
  - Abdominal pain [Unknown]
  - General physical health deterioration [Unknown]
  - Acute abdomen [Unknown]
  - Flatulence [Unknown]
  - Vomiting [Unknown]
  - Nausea [Unknown]
  - Renal failure [Unknown]
  - Dehydration [Unknown]
  - Gastrointestinal infection [Unknown]
